FAERS Safety Report 8592235 (Version 3)
Quarter: 2013Q2

REPORT INFORMATION
  Report Type: Spontaneous
  Country: FR (occurrence: FR)
  Receive Date: 20120601
  Receipt Date: 20130605
  Transmission Date: 20140414
  Serious: Yes (Death, Hospitalization)
  Sender: FDA-Public Use
  Company Number: FR-BAXTER-2012BAX006355

PATIENT
  Age: 45 Year
  Sex: Male

DRUGS (12)
  1. ENDOXAN 50 MG, COMPRIM? ENROB? [Suspect]
     Indication: LYMPHOMA
     Route: 048
     Dates: start: 20100506, end: 20100905
  2. MABTHERA [Suspect]
     Indication: LYMPHOMA
     Dosage: 800 MG DAY 1, THEN 780 MG
     Route: 042
     Dates: start: 20080425, end: 20080516
  3. MABTHERA [Suspect]
     Dosage: ONCE IN 28 DAYS
     Route: 042
     Dates: start: 20100506, end: 20100901
  4. MABTHERA [Suspect]
     Route: 042
     Dates: start: 20101116, end: 201204
  5. METHYLPREDNISOLONE [Suspect]
     Indication: PREMEDICATION
     Route: 042
     Dates: start: 20100506, end: 20100901
  6. METHYLPREDNISOLONE [Suspect]
     Route: 042
     Dates: start: 20101116, end: 201204
  7. METHYLPREDNISOLONE [Suspect]
     Route: 042
     Dates: start: 20080425, end: 20080516
  8. DOXORUBICINE EBEWE [Suspect]
     Indication: LYMPHOMA
     Route: 042
     Dates: start: 20100506, end: 20100901
  9. VINCRISTINE [Suspect]
     Indication: LYMPHOMA
     Route: 042
     Dates: start: 20100506, end: 20100901
  10. SOLUPRED [Suspect]
     Indication: LYMPHOMA
     Route: 048
     Dates: start: 20100507, end: 20100905
  11. POLARAMIN [Concomitant]
     Indication: PREMEDICATION
     Route: 065
     Dates: start: 201111, end: 201204
  12. PARACETAMOL [Concomitant]
     Indication: PREMEDICATION
     Route: 065
     Dates: start: 201111, end: 201204

REACTIONS (5)
  - Malignant melanoma [Fatal]
  - Metastases to central nervous system [Fatal]
  - Metastases to lung [Fatal]
  - Metastases to the mediastinum [Fatal]
  - Metastases to adrenals [Fatal]
